FAERS Safety Report 16571492 (Version 3)
Quarter: 2019Q3

REPORT INFORMATION
  Report Type: Spontaneous
  Country: US (occurrence: US)
  Receive Date: 20190715
  Receipt Date: 20190828
  Transmission Date: 20191004
  Serious: Yes (Other)
  Sender: FDA-Public Use
  Company Number: US-PFIZER INC-2019298145

PATIENT
  Age: 73 Year
  Sex: Female
  Weight: 54.43 kg

DRUGS (1)
  1. ADVIL [Suspect]
     Active Substance: IBUPROFEN
     Indication: TOOTHACHE
     Dosage: 200MG, TWO TABLETS THREE TIMES A DAY
     Route: 048
     Dates: start: 20190704

REACTIONS (5)
  - Heart rate increased [Not Recovered/Not Resolved]
  - Shock [Unknown]
  - Nausea [Not Recovered/Not Resolved]
  - Cold sweat [Unknown]
  - Dizziness [Unknown]

NARRATIVE: CASE EVENT DATE: 201907
